FAERS Safety Report 21968053 (Version 1)
Quarter: 2023Q1

REPORT INFORMATION
  Report Type: Spontaneous
  Country: DK (occurrence: DK)
  Receive Date: 20230208
  Receipt Date: 20230208
  Transmission Date: 20230417
  Serious: Yes (Disabling)
  Sender: FDA-Public Use
  Company Number: None

PATIENT
  Age: 56 Year
  Sex: Female

DRUGS (1)
  1. PREDNISOLONE [Suspect]
     Active Substance: PREDNISOLONE
     Indication: Polymyalgia rheumatica
     Dosage: STRENGTH: UNKNOWN. DOSAGE: VARYING DOSAGES BETWEEN 25 MG AND 1.25 MG., THE PATIENT INITIALLY STARTED
     Route: 065
     Dates: start: 20170523, end: 201911

REACTIONS (10)
  - Eye disorder [Unknown]
  - Palpitations [Unknown]
  - Vision blurred [Not Recovered/Not Resolved]
  - Cataract [Recovered/Resolved]
  - Dizziness [Unknown]
  - Secondary adrenocortical insufficiency [Not Recovered/Not Resolved]
  - Eye pain [Not Recovered/Not Resolved]
  - Weight increased [Unknown]
  - Fatigue [Unknown]
  - Photophobia [Unknown]

NARRATIVE: CASE EVENT DATE: 20170101
